FAERS Safety Report 17214063 (Version 4)
Quarter: 2021Q1

REPORT INFORMATION
  Report Type: Spontaneous
  Country: US (occurrence: US)
  Receive Date: 20191230
  Receipt Date: 20210111
  Transmission Date: 20210419
  Serious: No
  Sender: FDA-Public Use
  Company Number: US-PFIZER INC-2019461488

PATIENT
  Age: 73 Year
  Sex: Male
  Weight: 107 kg

DRUGS (4)
  1. SUTENT [Suspect]
     Active Substance: SUNITINIB MALATE
     Indication: RENAL CANCER
     Dosage: 25 MG, CYCLIC (TAKE SUTENT DAILY X14 DAYS, HOLD 7 DAYS)
     Route: 048
  2. SUTENT [Suspect]
     Active Substance: SUNITINIB MALATE
     Dosage: 37.5 MG, CYCLIC (TWO WEEKS ON/ONE WEEK OFF SCHEDULE)
     Dates: start: 20180904
  3. OPDIVO [Concomitant]
     Active Substance: NIVOLUMAB
     Indication: METASTATIC RENAL CELL CARCINOMA
     Dosage: UNK, MONTHLY (30 MINUTE INFUSION ONE PER MONTH)
     Dates: start: 201803
  4. SUTENT [Suspect]
     Active Substance: SUNITINIB MALATE
     Dosage: 2 DF, CYCLIC (DAILY A TOTAL DOSAGE OF 25 MG 1 WEEK ON AND 1 WEEK OFF)
     Route: 048

REACTIONS (4)
  - Weight decreased [Not Recovered/Not Resolved]
  - Taste disorder [Not Recovered/Not Resolved]
  - Dry mouth [Unknown]
  - Colitis [Recovering/Resolving]

NARRATIVE: CASE EVENT DATE: 201903
